FAERS Safety Report 5750149-6 (Version None)
Quarter: 2008Q2

REPORT INFORMATION
  Report Type: 
  Country: None (occurrence: None)
  Receive Date: 20080527
  Receipt Date: 20080519
  Transmission Date: 20081010
  Serious: Yes (Hospitalization, Other)
  Sender: FDA-Public Use
  Company Number: GB-PFIZER INC-2008039556

PATIENT
  Sex: Female

DRUGS (6)
  1. HUMATROPE [Suspect]
     Indication: GROWTH HORMONE DEFICIENCY
     Dosage: TEXT:3-4 UNITS-FREQ:EVERY DAY
     Route: 058
  2. HYDROCORTISONE [Concomitant]
     Dosage: TEXT:10/5MG
     Route: 048
  3. CYCLO-PROGYNOVA [Concomitant]
     Route: 048
  4. LEVOTHYROXINE SODIUM [Concomitant]
     Route: 048
  5. DESMOPRESSIN ACETATE [Concomitant]
     Dosage: TEXT:100/300MG
  6. VALPROATE SODIUM [Concomitant]
     Route: 048

REACTIONS (2)
  - NEOPLASM RECURRENCE [None]
  - TERATOMA [None]
